FAERS Safety Report 5744077-X (Version None)
Quarter: 2008Q2

REPORT INFORMATION
  Report Type: 
  Country: None (occurrence: None)
  Receive Date: 20080516
  Receipt Date: 20080516
  Transmission Date: 20081010
  Serious: Yes (Hospitalization)
  Sender: FDA-Public Use
  Company Number: None

PATIENT
  Sex: Female
  Weight: 54.4 kg

DRUGS (7)
  1. TEMOZOLOMIDE [Suspect]
     Indication: ACUTE MYELOID LEUKAEMIA
     Dosage: 200MG/M2 QD PO
     Route: 048
     Dates: start: 20080411, end: 20080417
  2. COUMADIN [Concomitant]
  3. CARDIA [Concomitant]
  4. CARDIZEM [Concomitant]
  5. PROTONIX [Concomitant]
  6. MULTI-VITAMIN [Concomitant]
  7. LUNESTA [Concomitant]

REACTIONS (4)
  - FEBRILE NEUTROPENIA [None]
  - GENERAL PHYSICAL CONDITION ABNORMAL [None]
  - PACKED RED BLOOD CELL TRANSFUSION [None]
  - PLATELET TRANSFUSION [None]
